FAERS Safety Report 8500448-X (Version None)
Quarter: 2012Q3

REPORT INFORMATION
  Report Type: 
  Country: None (occurrence: None)
  Receive Date: 20120710
  Receipt Date: 20120601
  Transmission Date: 20120928
  Serious: Yes (Hospitalization)
  Sender: FDA-Public Use
  Company Number: JP-GLAXOSMITHKLINE-B0805737A

PATIENT
  Sex: Female
  Weight: 68 kg

DRUGS (5)
  1. LOXONIN [Suspect]
     Indication: HERPES ZOSTER
     Dosage: 180MG PER DAY
     Route: 048
     Dates: start: 20120526, end: 20120531
  2. NICARDIPINE HCL [Concomitant]
     Indication: HYPERTENSION
     Dosage: 80MG PER DAY
     Route: 048
     Dates: end: 20120531
  3. LIVALO [Concomitant]
     Dosage: 1MG PER DAY
     Route: 048
     Dates: end: 20120531
  4. FAMOTIDINE [Concomitant]
     Dosage: 10MG PER DAY
     Route: 048
     Dates: end: 20120531
  5. VALTREX [Suspect]
     Indication: HERPES ZOSTER
     Dosage: 3000MG PER DAY
     Route: 048
     Dates: start: 20120526, end: 20120531

REACTIONS (5)
  - ALTERED STATE OF CONSCIOUSNESS [None]
  - DRUG LEVEL INCREASED [None]
  - RENAL IMPAIRMENT [None]
  - RENAL FAILURE ACUTE [None]
  - RENAL DISORDER [None]
